FAERS Safety Report 10413194 (Version 1)
Quarter: 2014Q2

REPORT INFORMATION
  Report Type: Spontaneous
  Country: US (occurrence: None)
  Receive Date: 20140530
  Receipt Date: 20140530
  Transmission Date: 20141212
  Serious: No
  Sender: FDA-Public Use
  Company Number: 226855

PATIENT
  Age: 60 Year
  Sex: Female

DRUGS (1)
  1. PICATO (INGENOL MEBUTATE) (0.05 %, GEL) [Suspect]
     Indication: ACTINIC KERATOSIS
     Dosage: 1 IN 1 D
     Route: 061
     Dates: start: 20140225, end: 20140226

REACTIONS (9)
  - Application site vesicles [None]
  - Application site pain [None]
  - Application site pain [None]
  - Eye irritation [None]
  - Eye irritation [None]
  - Eye pain [None]
  - Application site scab [None]
  - Drug administered at inappropriate site [None]
  - Accidental exposure to product [None]
